FAERS Safety Report 23701225 (Version 1)
Quarter: 2024Q2

REPORT INFORMATION
  Report Type: Spontaneous
  Country: GB (occurrence: GB)
  Receive Date: 20240403
  Receipt Date: 20240403
  Transmission Date: 20240716
  Serious: Yes (Other)
  Sender: FDA-Public Use
  Company Number: GB-009507513-2402USA000578

PATIENT
  Sex: Female

DRUGS (4)
  1. ALIMTA [Suspect]
     Active Substance: PEMETREXED DISODIUM
     Indication: Lung neoplasm malignant
     Dosage: UNK, UNKNOWN
     Route: 065
     Dates: start: 2021, end: 2023
  2. ALIMTA [Suspect]
     Active Substance: PEMETREXED DISODIUM
     Indication: Salivary gland cancer
  3. KEYTRUDA [Suspect]
     Active Substance: PEMBROLIZUMAB
     Indication: Lung neoplasm malignant
     Dosage: UNK, UNKNOWN
     Route: 042
     Dates: start: 2021, end: 2023
  4. KEYTRUDA [Suspect]
     Active Substance: PEMBROLIZUMAB
     Indication: Salivary gland cancer
     Dosage: UNK, UNKNOWN
     Route: 042
     Dates: start: 2023

REACTIONS (2)
  - Pulmonary oedema [Unknown]
  - Malignant neoplasm progression [Unknown]

NARRATIVE: CASE EVENT DATE: 20230801
